FAERS Safety Report 5356867-6 (Version None)
Quarter: 2007Q2

REPORT INFORMATION
  Report Type: 
  Country: None (occurrence: None)
  Receive Date: 20070614
  Receipt Date: 20060912
  Transmission Date: 20071010
  Serious: No
  Sender: FDA-Public Use
  Company Number: US-ASTRAZENECA-2006UW17834

PATIENT
  Age: 55 Year
  Sex: Female
  Weight: 90.7 kg

DRUGS (4)
  1. ATACAND [Suspect]
     Indication: HYPERTENSION
     Route: 048
     Dates: start: 20060801
  2. DILANTIN [Concomitant]
  3. HYDROCHLOROTHIAZIDE [Concomitant]
  4. EFFEXOR [Concomitant]

REACTIONS (1)
  - PAIN [None]
